FAERS Safety Report 10077042 (Version 2)
Quarter: 2014Q2

REPORT INFORMATION
  Report Type: Report from Study
  Country: JP (occurrence: JP)
  Receive Date: 20140414
  Receipt Date: 20140423
  Transmission Date: 20141212
  Serious: Yes (Hospitalization)
  Sender: FDA-Public Use
  Company Number: JP-CELGENEUS-087-21660-14042219

PATIENT
  Age: 77 Year
  Sex: Female
  Weight: 49 kg

DRUGS (10)
  1. ABRAXANE [Suspect]
     Indication: GASTRIC CANCER
     Dosage: 148 MILLIGRAM
     Route: 041
     Dates: start: 20131217
  2. GLUFAST [Concomitant]
     Indication: DIABETES MELLITUS
     Dosage: 30 MILLIGRAM
     Route: 048
  3. BEZATOL SR [Concomitant]
     Indication: DYSLIPIDAEMIA
     Dosage: 400 MILLIGRAM
     Route: 048
  4. AVAPRO [Concomitant]
     Indication: HYPERTENSION
     Dosage: 50 MILLIGRAM
     Route: 048
  5. LAFUTIDINE [Concomitant]
     Indication: PRODUCT USED FOR UNKNOWN INDICATION
     Dosage: 20 MILLIGRAM
     Route: 048
     Dates: start: 20130122
  6. DOMPERIDONE [Concomitant]
     Indication: NAUSEA
     Dosage: 30 MILLIGRAM
     Route: 048
     Dates: start: 20130617
  7. CINAL [Concomitant]
     Indication: PRODUCT USED FOR UNKNOWN INDICATION
     Dosage: 3 GRAM
     Route: 048
     Dates: start: 20130805
  8. COCARL [Concomitant]
     Indication: PRODUCT USED FOR UNKNOWN INDICATION
     Dosage: 1200 MILLIGRAM
     Route: 048
     Dates: start: 20131127
  9. HYALURONATE NA [Concomitant]
     Indication: DRY EYE
     Dates: start: 20140220
  10. MUCOSTA [Concomitant]
     Indication: DRY EYE
     Dates: start: 20140220

REACTIONS (1)
  - Tumour haemorrhage [Recovered/Resolved]
